FAERS Safety Report 10237193 (Version 1)
Quarter: 2014Q1

REPORT INFORMATION
  Report Type: Spontaneous
  Country: US (occurrence: None)
  Receive Date: 20140306
  Receipt Date: 20140306
  Transmission Date: 20141002
  Serious: Yes (Hospitalization, Other)
  Sender: FDA-Public Use
  Company Number: 163-21880-13124986

PATIENT
  Age: 63 Year
  Sex: Male

DRUGS (17)
  1. REVLIMID (LENALIDOMIDE) (5 MILLIGRAM, CAPSULES) [Suspect]
     Indication: PLASMA CELL MYELOMA
     Dosage: 5 MG, 1 IN 1 D, PO
     Route: 048
     Dates: start: 20100311
  2. ATENOLOL (ATENOLOL) [Concomitant]
  3. ASA (ACETYLSALICYLIC ACID) [Concomitant]
  4. POTASSIUM CITRATE (POTASSIUM CITRATE) (UNKNOWN) [Concomitant]
  5. LORAZEPAM (LORAZEPAM) (UNKNOWN) [Concomitant]
  6. FUROSEMIDE (FUROSEMIDE) (UNKNOWN) [Concomitant]
  7. TRAMADOL HCL (TRAMADOL HYDROCHLORIDE) (UNKNOWN) [Concomitant]
  8. GABAPENTIN (GABAPENTIN) (UNKNOWN) [Concomitant]
  9. CELEBREX (CELECOXIB) (UNKNOWN) [Concomitant]
  10. LEXAPRO (ESCITALOPRAM OXALATE) (UNKNOWN) [Concomitant]
  11. VITAMIN C (ASCORBIC ACID) (UNKNOWN) [Concomitant]
  12. CENTRUM (CENTRUM) (UNKNOWN) [Concomitant]
  13. CALCIUM CITRATE + D (CALCIUM CITRATE W/COLECALCIFEROL) (UNKNOWN) [Concomitant]
  14. MUCINEX (GUAIFENESIN) (UNKNOWN) [Concomitant]
  15. ALBUTEROL (SALBUTAMOL) (INHALANT) [Concomitant]
  16. PROBIOTIC (BIFIDOBACTERIUM LACTIS) (UNKNOWN) [Concomitant]
  17. ATIVAN (LORAZEPAM) (UNKNOWN) [Concomitant]

REACTIONS (1)
  - Pneumonia [None]
